FAERS Safety Report 8296200 (Version 2)
Quarter: 2012Q4

REPORT INFORMATION
  Report Type: 
  Country: US (occurrence: US)
  Receive Date: 20111216
  Receipt Date: 20121218
  Transmission Date: 20130627
  Serious: Yes (Other)
  Sender: FDA-Public Use
  Company Number: US-BRISTOL-MYERS SQUIBB COMPANY-16121717

PATIENT
  Age: 36 Year
  Sex: Female

DRUGS (2)
  1. ABILIFY [Suspect]
     Indication: DEPRESSION
     Route: 048
     Dates: start: 20110818, end: 20111001
  2. ZOLOFT [Suspect]
     Indication: DEPRESSION

REACTIONS (3)
  - Diabetes mellitus [Unknown]
  - Galactorrhoea [Unknown]
  - Weight increased [Unknown]
